FAERS Safety Report 20016930 (Version 8)
Quarter: 2022Q1

REPORT INFORMATION
  Report Type: Report from Study
  Country: US (occurrence: US)
  Receive Date: 20211030
  Receipt Date: 20220202
  Transmission Date: 20220424
  Serious: Yes (Hospitalization)
  Sender: FDA-Public Use
  Company Number: US-NOVARTISTESTPH-NVSC2021US248286

PATIENT
  Sex: Male

DRUGS (2)
  1. ENTRESTO [Suspect]
     Active Substance: SACUBITRIL\VALSARTAN
     Indication: Product used for unknown indication
     Dosage: 1 DF, BID (24/26 MG)
     Route: 048
  2. ELIQUIS [Suspect]
     Active Substance: APIXABAN
     Indication: Product used for unknown indication
     Dosage: UNK
     Route: 065

REACTIONS (10)
  - Pericardial disease [Unknown]
  - Throat clearing [Unknown]
  - Feeling abnormal [Unknown]
  - Vision blurred [Unknown]
  - Epistaxis [Unknown]
  - Rhinorrhoea [Unknown]
  - Sinusitis [Unknown]
  - Cough [Unknown]
  - Dizziness [Unknown]
  - Inappropriate schedule of product administration [Unknown]
